FAERS Safety Report 6244277-9 (Version None)
Quarter: 2009Q2

REPORT INFORMATION
  Report Type: 
  Country: None (occurrence: None)
  Receive Date: 20090623
  Receipt Date: 20090623
  Transmission Date: 20091009
  Serious: Yes (Hospitalization)
  Sender: FDA-Public Use
  Company Number: None

PATIENT
  Age: 44 Year
  Sex: Female
  Weight: 121.6 kg

DRUGS (1)
  1. TOPIRAMATE [Suspect]
     Indication: HEADACHE
     Dosage: 50 MG BID PO
     Route: 048
     Dates: start: 20090416, end: 20090601

REACTIONS (4)
  - DISORIENTATION [None]
  - DYSCALCULIA [None]
  - HALLUCINATIONS, MIXED [None]
  - MEMORY IMPAIRMENT [None]
